FAERS Safety Report 21493887 (Version 1)
Quarter: 2022Q4

REPORT INFORMATION
  Report Type: Spontaneous
  Country: FI (occurrence: FI)
  Receive Date: 20221021
  Receipt Date: 20221021
  Transmission Date: 20230113
  Serious: Yes (Other)
  Sender: FDA-Public Use
  Company Number: None

PATIENT
  Age: 68 Year
  Sex: Female

DRUGS (5)
  1. HYDROCHLOROTHIAZIDE\LOSARTAN [Suspect]
     Active Substance: HYDROCHLOROTHIAZIDE\LOSARTAN
     Indication: Product used for unknown indication
     Dosage: 1.5 DOSAGE FORMS DAILY; 1.5,DF,DAILY
     Route: 065
  2. COMIRNATY [Suspect]
     Active Substance: TOZINAMERAN
     Indication: Product used for unknown indication
     Dosage: DOSE 1, DURATION : 1 DAY
     Route: 065
     Dates: start: 20210507, end: 20210507
  3. HYDROXOCOBALAMIN ACETATE [Suspect]
     Active Substance: HYDROXOCOBALAMIN ACETATE
     Indication: Product used for unknown indication
     Dosage: CYCLICAL
     Route: 065
  4. PANTOPRAZOLE SODIUM [Suspect]
     Active Substance: PANTOPRAZOLE SODIUM
     Indication: Product used for unknown indication
     Dosage: 40 MILLIGRAM DAILY; 40,MG,DAILY
     Route: 065
  5. VAGIFEM [Concomitant]
     Active Substance: ESTRADIOL
     Indication: Product used for unknown indication
     Dosage: 20,UG,WEEKLY

REACTIONS (6)
  - Depressed level of consciousness [Recovered/Resolved]
  - Feeling cold [Recovered/Resolved]
  - Nausea [Recovered/Resolved]
  - Pyrexia [Recovered/Resolved]
  - Myalgia [Recovered/Resolved]
  - Dizziness [Recovered/Resolved]

NARRATIVE: CASE EVENT DATE: 20210509
